FAERS Safety Report 8113445 (Version 2)
Quarter: 2012Q4

REPORT INFORMATION
  Report Type: 
  Country: IE (occurrence: IE)
  Receive Date: 20110830
  Receipt Date: 20120906
  Transmission Date: 20130627
  Serious: Yes (Other)
  Sender: FDA-Public Use
  Company Number: IE-AMGEN-IRLSP2011043404

PATIENT
  Age: 73 Year
  Sex: Male

DRUGS (10)
  1. ARANESP [Suspect]
     Indication: RENAL FAILURE CHRONIC
     Dosage: 30 mug, qwk
     Route: 058
     Dates: start: 20110406, end: 20120828
  2. BURINEX [Concomitant]
  3. LIPOSTAT [Concomitant]
  4. GALFER [Concomitant]
  5. ZOLEPANT [Concomitant]
  6. DIOVAN [Concomitant]
  7. QUININE [Concomitant]
  8. CLONFOLIC [Concomitant]
  9. CARDICOR [Concomitant]
  10. PRAXILENE [Concomitant]
     Dosage: 100 mg, UNK

REACTIONS (3)
  - Haemoglobin decreased [Not Recovered/Not Resolved]
  - Epistaxis [Recovered/Resolved]
  - Fatigue [Not Recovered/Not Resolved]
